FAERS Safety Report 12532147 (Version 1)
Quarter: 2016Q3

REPORT INFORMATION
  Report Type: Report from Study
  Country: PE (occurrence: PE)
  Receive Date: 20160706
  Receipt Date: 20160706
  Transmission Date: 20161109
  Serious: Yes (Hospitalization)
  Sender: FDA-Public Use
  Company Number: PE-009507513-1607PER001797

PATIENT
  Age: 36 Year
  Sex: Female

DRUGS (1)
  1. JANUMET [Suspect]
     Active Substance: METFORMIN HYDROCHLORIDE\SITAGLIPTIN PHOSPHATE
     Indication: DIABETES MELLITUS
     Dosage: 50/1000 MG BID
     Route: 048
     Dates: start: 201510, end: 20160623

REACTIONS (3)
  - Infection [Unknown]
  - Blood glucose increased [Unknown]
  - Blood glucose abnormal [Unknown]
